FAERS Safety Report 17546502 (Version 23)
Quarter: 2025Q1

REPORT INFORMATION
  Report Type: Report from Study
  Country: US (occurrence: US)
  Receive Date: 20200316
  Receipt Date: 20250318
  Transmission Date: 20250409
  Serious: Yes (Hospitalization, Other)
  Sender: TAKEDA
  Company Number: US-SHIRE-US202009720

PATIENT
  Age: 79 Year
  Sex: Female
  Weight: 103 kg

DRUGS (47)
  1. HUMAN IMMUNOGLOBULIN G\HYALURONIDASE RECOMBINANT HUMAN [Suspect]
     Active Substance: HUMAN IMMUNOGLOBULIN G\HYALURONIDASE (HUMAN RECOMBINANT)
     Indication: Immunodeficiency common variable
     Dosage: 30 GRAM, Q4WEEKS
     Dates: start: 20160518
  2. HUMAN IMMUNOGLOBULIN G\HYALURONIDASE RECOMBINANT HUMAN [Suspect]
     Active Substance: HUMAN IMMUNOGLOBULIN G\HYALURONIDASE (HUMAN RECOMBINANT)
     Indication: Immunodeficiency
     Dosage: 25 GRAM, Q4WEEKS
  3. DIPHENHYDRAMINE [Concomitant]
     Active Substance: DIPHENHYDRAMINE
  4. EPINEPHRINE [Concomitant]
     Active Substance: EPINEPHRINE
  5. FLUTICASONE PROPIONATE [Concomitant]
     Active Substance: FLUTICASONE PROPIONATE
  6. LORATADINE [Concomitant]
     Active Substance: LORATADINE
  7. TRIAMCINOLONE ACETONIDE [Concomitant]
     Active Substance: TRIAMCINOLONE ACETONIDE
  8. VITAMIN B [Concomitant]
     Active Substance: VITAMIN B
  9. ACETAMINOPHEN [Concomitant]
     Active Substance: ACETAMINOPHEN
  10. METRONIDAZOLE [Concomitant]
     Active Substance: METRONIDAZOLE
  11. OMEPRAZOLE [Concomitant]
     Active Substance: OMEPRAZOLE
  12. SODIUM CHLORIDE [Concomitant]
     Active Substance: SODIUM CHLORIDE
  13. ASPIRIN [Concomitant]
     Active Substance: ASPIRIN
  14. HYDROCHLOROTHIAZIDE [Concomitant]
     Active Substance: HYDROCHLOROTHIAZIDE
  15. METHYLPREDNISOLONE [Concomitant]
     Active Substance: METHYLPREDNISOLONE
  16. NAPROXEN [Concomitant]
     Active Substance: NAPROXEN
  17. ESTRACE [Concomitant]
     Active Substance: ESTRADIOL
  18. VITAMIN C [Concomitant]
     Active Substance: ASCORBIC ACID
  19. PRAVASTATIN SODIUM [Concomitant]
     Active Substance: PRAVASTATIN SODIUM
  20. MAGNESIUM [Concomitant]
     Active Substance: MAGNESIUM
  21. LOSARTAN POTASSIUM [Concomitant]
     Active Substance: LOSARTAN POTASSIUM
  22. FISH OIL [Concomitant]
     Active Substance: FISH OIL
  23. LIDOCAINE [Concomitant]
     Active Substance: LIDOCAINE
  24. Calcium 600 + D3 plus minerals [Concomitant]
  25. OXYCODONE AND ACETAMINOPHEN [Concomitant]
     Active Substance: ACETAMINOPHEN\OXYCODONE HYDROCHLORIDE
  26. DULOXETINE [Concomitant]
     Active Substance: DULOXETINE
  27. GABAPENTIN [Concomitant]
     Active Substance: GABAPENTIN
  28. MONTELUKAST [Concomitant]
     Active Substance: MONTELUKAST
  29. FUROSEMIDE [Concomitant]
     Active Substance: FUROSEMIDE
  30. HYDROCHLOROTHIAZIDE [Concomitant]
     Active Substance: HYDROCHLOROTHIAZIDE
  31. CLINDAMYCIN [Concomitant]
     Active Substance: CLINDAMYCIN
  32. PROVENTIL [Concomitant]
     Active Substance: ALBUTEROL
  33. FLONASE [Concomitant]
     Active Substance: FLUTICASONE PROPIONATE
  34. CYANOCOBALAMIN [Concomitant]
     Active Substance: CYANOCOBALAMIN
  35. ADVAIR HFA [Concomitant]
     Active Substance: FLUTICASONE PROPIONATE\SALMETEROL XINAFOATE
  36. CALCIUM\VITAMIN D [Concomitant]
     Active Substance: CALCIUM\VITAMIN D
  37. Cough control dm [Concomitant]
  38. FLUOROURACIL [Concomitant]
     Active Substance: FLUOROURACIL
     Indication: Leukoplakia oral
     Route: 061
  39. VITAMIN D3 [Concomitant]
     Active Substance: CHOLECALCIFEROL
  40. B12 [Concomitant]
  41. VITAMIN B6 [Concomitant]
     Active Substance: PYRIDOXINE HYDROCHLORIDE
  42. POTASSIUM CHLORIDE [Concomitant]
     Active Substance: POTASSIUM CHLORIDE
  43. IPRATROPIUM BROMIDE [Concomitant]
     Active Substance: IPRATROPIUM BROMIDE
  44. LEVOFLOXACIN [Concomitant]
     Active Substance: LEVOFLOXACIN
  45. ALDACTONE [Concomitant]
     Active Substance: SPIRONOLACTONE
  46. DIPHENHYDRAMINE HYDROCHLORIDE [Concomitant]
     Active Substance: DIPHENHYDRAMINE HYDROCHLORIDE
  47. MYRBETRIQ [Concomitant]
     Active Substance: MIRABEGRON

REACTIONS (18)
  - Precancerous condition [Unknown]
  - Pneumonia [Unknown]
  - Fall [Unknown]
  - Joint injury [Unknown]
  - Bronchitis [Unknown]
  - Nasopharyngitis [Unknown]
  - Urinary tract infection [Unknown]
  - Arthritis [Unknown]
  - Sinusitis [Not Recovered/Not Resolved]
  - Infusion site urticaria [Unknown]
  - COVID-19 [Unknown]
  - Administration site bruise [Unknown]
  - Device infusion issue [Unknown]
  - Viral infection [Unknown]
  - Dust allergy [Unknown]
  - Staphylococcal infection [Unknown]
  - Infusion site haemorrhage [Unknown]
  - Infusion site pain [Unknown]

NARRATIVE: CASE EVENT DATE: 20210914
